FAERS Safety Report 5491338-8 (Version None)
Quarter: 2007Q4

REPORT INFORMATION
  Report Type: 
  Country: None (occurrence: None)
  Receive Date: 20071017
  Receipt Date: 20071005
  Transmission Date: 20080405
  Serious: Yes (Hospitalization, Disabling, Other)
  Sender: FDA-Public Use
  Company Number: CAP07000327

PATIENT
  Age: 81 Year
  Sex: Female
  Weight: 43.1 kg

DRUGS (4)
  1. ACTONEL [Suspect]
     Indication: OSTEOPOROSIS
     Dosage: 35 MG, 1/WEEK, ORAL
     Route: 048
     Dates: start: 20010101, end: 20070101
  2. SYNTHROID [Concomitant]
  3. MIACALCIN [Concomitant]
  4. PANTOPRAZOLE SODIUM [Concomitant]

REACTIONS (3)
  - HYPERTENSION [None]
  - METASTASES TO ABDOMINAL CAVITY [None]
  - OVARIAN CANCER METASTATIC [None]
